FAERS Safety Report 13163204 (Version 1)
Quarter: 2017Q1

REPORT INFORMATION
  Report Type: Spontaneous
  Country: US (occurrence: US)
  Receive Date: 20170125
  Receipt Date: 20170125
  Transmission Date: 20170428
  Serious: Yes (Other)
  Sender: FDA-Public Use
  Company Number: None

PATIENT
  Age: 55 Year
  Sex: Female
  Weight: 67.5 kg

DRUGS (1)
  1. MELOXICAM 15MG [Suspect]
     Active Substance: MELOXICAM
     Indication: INFLAMMATION
     Dates: start: 20161222, end: 20161225

REACTIONS (4)
  - Tremor [None]
  - Dysgeusia [None]
  - Malaise [None]
  - Heart rate increased [None]

NARRATIVE: CASE EVENT DATE: 20161223
